FAERS Safety Report 12234375 (Version 1)
Quarter: 2016Q2

REPORT INFORMATION
  Report Type: Spontaneous
  Country: US (occurrence: US)
  Receive Date: 20160404
  Receipt Date: 20160404
  Transmission Date: 20160815
  Serious: No
  Sender: FDA-Public Use
  Company Number: US-GLAXOSMITHKLINE-US2016GSK040911

PATIENT
  Sex: Female

DRUGS (2)
  1. BETAPACE [Suspect]
     Active Substance: SOTALOL HYDROCHLORIDE
  2. RYTHMOL [Suspect]
     Active Substance: PROPAFENONE HYDROCHLORIDE

REACTIONS (1)
  - Drug ineffective [Unknown]
